FAERS Safety Report 5115660-X (Version None)
Quarter: 2006Q3

REPORT INFORMATION
  Report Type: 
  Country: None (occurrence: None)
  Receive Date: 20060926
  Receipt Date: 20060926
  Transmission Date: 20061208
  Serious: No
  Sender: FDA-Public Use
  Company Number: None

PATIENT
  Sex: Female
  Weight: 78.18 kg

DRUGS (4)
  1. MERCAPTOPURINE [Suspect]
     Dosage: 11449 MG          SEE IMAGE
  2. METHOTREXATE [Suspect]
     Dosage: 380 MG           SEE IMAGE
  3. DEXAMETHASONE TAB [Suspect]
     Dosage: 150 MG       SEE IMAGE
  4. VINCRISTINE SULFATE [Suspect]
     Dosage: 6 MG           SEE IMAGE
     Route: 042

REACTIONS (17)
  - ABDOMINAL PAIN [None]
  - ALANINE AMINOTRANSFERASE INCREASED [None]
  - ASPARTATE AMINOTRANSFERASE INCREASED [None]
  - BILIRUBIN CONJUGATED INCREASED [None]
  - BLOOD BILIRUBIN INCREASED [None]
  - CHOLELITHIASIS [None]
  - DEHYDRATION [None]
  - DIARRHOEA [None]
  - DRUG TOXICITY [None]
  - GALLBLADDER DISORDER [None]
  - GASTROENTERITIS VIRAL [None]
  - NAUSEA [None]
  - NEUTROPHIL COUNT INCREASED [None]
  - OCULAR ICTERUS [None]
  - PALLOR [None]
  - PRURITUS [None]
  - VOMITING [None]
